FAERS Safety Report 8917490 (Version 1)
Quarter: 2012Q4

REPORT INFORMATION
  Report Type: 
  Country: US (occurrence: US)
  Receive Date: 20121119
  Receipt Date: 20121119
  Transmission Date: 20130627
  Serious: No
  Sender: FDA-Public Use
  Company Number: US-009507513-1211USA003785

PATIENT
  Sex: Female
  Weight: 77.98 kg

DRUGS (2)
  1. PEGINTRON [Suspect]
     Indication: HEPATITIS C
     Dosage: 120 Microgram, qw
     Dates: start: 20120620
  2. RIBAVIRIN [Suspect]
     Indication: HEPATITIS C
     Dosage: UNK

REACTIONS (2)
  - Pruritus [Not Recovered/Not Resolved]
  - Rash [Not Recovered/Not Resolved]
